FAERS Safety Report 18480485 (Version 2)
Quarter: 2021Q1

REPORT INFORMATION
  Report Type: Spontaneous
  Country: DE (occurrence: DE)
  Receive Date: 20201109
  Receipt Date: 20210321
  Transmission Date: 20210419
  Serious: Yes (Life-Threatening, Hospitalization, Other)
  Sender: FDA-Public Use
  Company Number: DE-TEVA-2020-DE-1845332

PATIENT
  Age: 65 Year
  Sex: Female
  Weight: 74 kg

DRUGS (14)
  1. HALOPERIDOL. [Suspect]
     Active Substance: HALOPERIDOL
     Indication: SCHIZOAFFECTIVE DISORDER
     Dosage: 2 MG
     Route: 042
     Dates: start: 20190502, end: 20190515
  2. CANDESARTAN CILEXETIL. [Concomitant]
     Active Substance: CANDESARTAN CILEXETIL
  3. DIPIDOLOR [Concomitant]
     Active Substance: PIRITRAMIDE
     Dosage: 3.75 MG
     Route: 042
  4. PANTOZOL [Concomitant]
     Active Substance: PANTOPRAZOLE SODIUM
     Dosage: 20 MG
     Route: 048
  5. CITALOPRAM [Concomitant]
     Active Substance: CITALOPRAM HYDROBROMIDE
     Dosage: 30 MG
     Route: 048
  6. ESIDRIX [Concomitant]
     Active Substance: HYDROCHLOROTHIAZIDE
     Dosage: 25 MG
     Route: 048
  7. BIPERIDEN [Concomitant]
     Active Substance: BIPERIDEN
     Dosage: 4 MG
     Route: 048
  8. CLONIDIN 0,075 [Suspect]
     Active Substance: CLONIDINE
     Indication: HYPERTENSION
     Route: 042
     Dates: start: 20190502, end: 20190515
  9. CONCOR COR 1,25 MG [Concomitant]
     Dosage: 1.25 MG
     Route: 048
  10. NOVORAPID [Concomitant]
     Active Substance: INSULIN ASPART
     Route: 058
  11. FLUANXOL 5MG [Concomitant]
     Dosage: 5 MG
     Route: 048
  12. LOCOL (FLUVASTATIN SODIUM) [Suspect]
     Active Substance: FLUVASTATIN SODIUM
     Indication: LIPID METABOLISM DISORDER
     Dosage: 80 MG
     Route: 048
     Dates: start: 20190430, end: 20190620
  13. NORVASC [Concomitant]
     Active Substance: AMLODIPINE BESYLATE
     Dosage: 5 MG
     Route: 048
  14. ISCOVER 75MG [Concomitant]
     Dosage: 75 MG
     Route: 048

REACTIONS (10)
  - Coma [Recovered/Resolved]
  - Unresponsive to stimuli [Recovered/Resolved]
  - Rhabdomyolysis [Recovered/Resolved]
  - Paresis [Recovered/Resolved with Sequelae]
  - Blood creatine phosphokinase increased [Recovered/Resolved]
  - Respiratory failure [Recovered/Resolved]
  - Hypernatraemia [Recovered/Resolved]
  - Agitation [Recovered/Resolved]
  - Pyrexia [Recovered/Resolved]
  - Oromandibular dystonia [Recovered/Resolved]

NARRATIVE: CASE EVENT DATE: 20190430
